FAERS Safety Report 10023444 (Version 1)
Quarter: 2013Q4

REPORT INFORMATION
  Report Type: Spontaneous
  Country: US (occurrence: None)
  Receive Date: 20131224
  Receipt Date: 20131224
  Transmission Date: 20140711
  Serious: Yes (Hospitalization, Other)
  Sender: FDA-Public Use
  Company Number: 13-05254

PATIENT
  Age: 53 Year
  Sex: Male
  Weight: 72.12 kg

DRUGS (5)
  1. ALBUTEROL SULFATE [Suspect]
     Indication: CHRONIC OBSTRUCTIVE PULMONARY DISEASE
     Dosage: 1 VIAL QID 054
     Dates: start: 201310, end: 201311
  2. NEPHRON PHARMACEUTICALS CORPORATION [Suspect]
     Indication: CHRONIC OBSTRUCTIVE PULMONARY DISEASE
     Dosage: 1 VIAL QID 054
     Dates: start: 201310, end: 201311
  3. SPIRIVA (TIOTROPIUM) [Concomitant]
  4. MIRAPEX (PRAMIPEXOLE) [Concomitant]
  5. OVAR (BECLOMETHASONE) [Concomitant]

REACTIONS (4)
  - Drug ineffective [None]
  - Acute respiratory failure [None]
  - Pneumonia [None]
  - Heart rate decreased [None]
